FAERS Safety Report 6093983-8 (Version None)
Quarter: 2009Q1

REPORT INFORMATION
  Report Type: 
  Country: None (occurrence: None)
  Receive Date: 20090226
  Receipt Date: 20090223
  Transmission Date: 20090719
  Serious: Yes (Death)
  Sender: FDA-Public Use
  Company Number: B0549914A

PATIENT
  Age: 59 Year
  Sex: Male

DRUGS (6)
  1. ALKERAN [Suspect]
     Indication: LYMPHOMA
     Dosage: 210MG PER DAY
     Route: 042
     Dates: start: 20051204, end: 20051204
  2. ETOPOSIDE [Suspect]
     Indication: LYMPHOMA
     Dosage: 800MG PER DAY
     Route: 042
     Dates: start: 20051201, end: 20051203
  3. CYCLOPHOSPHAMIDE [Suspect]
     Indication: LYMPHOMA
     Dosage: 3720MG PER DAY
     Route: 042
     Dates: start: 20051201, end: 20051202
  4. DECADRON [Suspect]
     Indication: LYMPHOMA
     Dosage: 40MG PER DAY
     Route: 042
     Dates: start: 20051201, end: 20051204
  5. UNKNOWN DRUG [Concomitant]
     Dates: start: 20051201
  6. IRRADIATION [Concomitant]
     Dates: start: 20060101

REACTIONS (8)
  - BRONCHITIS [None]
  - BRONCHOPNEUMONIA [None]
  - OBLITERATIVE BRONCHIOLITIS [None]
  - OBSTRUCTIVE AIRWAYS DISORDER [None]
  - PAINFUL RESPIRATION [None]
  - PNEUMOCYSTIS JIROVECI PNEUMONIA [None]
  - RESPIRATORY FAILURE [None]
  - SEPSIS [None]
